FAERS Safety Report 7172021-X (Version None)
Quarter: 2010Q4

REPORT INFORMATION
  Report Type: 
  Country: None (occurrence: None)
  Receive Date: 20101217
  Receipt Date: 20100131
  Transmission Date: 20110411
  Serious: No
  Sender: FDA-Public Use
  Company Number: US-AMGEN-KDL389802

PATIENT

DRUGS (2)
  1. ENBREL [Suspect]
     Indication: RHEUMATOID ARTHRITIS
     Dosage: 50 MG, QWK
     Route: 058
     Dates: start: 20081215
  2. AZATHIOPRINE [Concomitant]
     Dosage: 50 MG, QD
     Route: 048
     Dates: start: 20100101

REACTIONS (5)
  - C-REACTIVE PROTEIN ABNORMAL [None]
  - CHEST PAIN [None]
  - INTERLEUKIN LEVEL INCREASED [None]
  - PLATELET COUNT INCREASED [None]
  - RED BLOOD CELL SEDIMENTATION RATE ABNORMAL [None]
